FAERS Safety Report 15284927 (Version 3)
Quarter: 2018Q3

REPORT INFORMATION
  Report Type: Report from Study
  Country: DE (occurrence: DE)
  Receive Date: 20180816
  Receipt Date: 20180925
  Transmission Date: 20181010
  Serious: Yes (Life-Threatening, Other)
  Sender: FDA-Public Use
  Company Number: DE-TEVA-2018-DE-940705

PATIENT
  Age: 21 Year
  Sex: Male

DRUGS (11)
  1. LORAZEPAM. [Suspect]
     Active Substance: LORAZEPAM
     Indication: PRODUCT USED FOR UNKNOWN INDICATION
     Dosage: 20 MG, ONCE FOR SUICIDE ATTEMPT
     Route: 048
     Dates: start: 20171213, end: 20171213
  2. PIPAMPERONE [Suspect]
     Active Substance: PIPAMPERONE
     Indication: SUICIDE ATTEMPT
     Dosage: 400 MG, ONCE FOR SUICIDE ATTEMPT;
     Route: 048
     Dates: start: 20171213, end: 20171213
  3. LORAZEPAM. [Suspect]
     Active Substance: LORAZEPAM
     Dosage: .5 MILLIGRAM DAILY;
     Route: 048
     Dates: start: 20171216
  4. CHLORPROTHIXEN [Concomitant]
     Active Substance: CHLORPROTHIXENE HYDROCHLORIDE
     Dosage: 50 MILLIGRAM DAILY; UNK, WEEKS OF INTAKE
     Route: 048
     Dates: end: 20171213
  5. VENLAFAXINE [Suspect]
     Active Substance: VENLAFAXINE HYDROCHLORIDE
     Indication: PRODUCT USED FOR UNKNOWN INDICATION
     Dosage: 100 MILLIGRAM DAILY;
     Route: 048
     Dates: start: 20171128, end: 20171213
  6. AMITRIPTYLIN [Suspect]
     Active Substance: AMITRIPTYLINE
     Dosage: 100 MILLIGRAM DAILY;
     Route: 048
     Dates: end: 20171213
  7. CHLORPROTHIXEN [Concomitant]
     Active Substance: CHLORPROTHIXENE HYDROCHLORIDE
     Indication: PRODUCT USED FOR UNKNOWN INDICATION
     Dosage: 50 MILLIGRAM DAILY;
     Route: 048
     Dates: start: 20171216
  8. AMITRIPTYLIN [Suspect]
     Active Substance: AMITRIPTYLINE
     Dosage: 50 MILLIGRAM DAILY;
     Route: 048
     Dates: start: 20171215
  9. LORAZEPAM. [Suspect]
     Active Substance: LORAZEPAM
     Dosage: 3 MILLIGRAM DAILY;
     Route: 048
     Dates: start: 20171128, end: 20171213
  10. CHLORPROTHIXEN [Concomitant]
     Active Substance: CHLORPROTHIXENE HYDROCHLORIDE
     Dosage: 250 MG, ONCE FOR SUICIDE ATTEMPT;
     Route: 048
     Dates: start: 20171213, end: 20171213
  11. AMITRIPTYLIN [Suspect]
     Active Substance: AMITRIPTYLINE
     Indication: PRODUCT USED FOR UNKNOWN INDICATION
     Dosage: 1 G, ONCE FOR SUICIDE ATTEMPT;
     Route: 048
     Dates: start: 20171213, end: 20171213

REACTIONS (2)
  - Suicide attempt [Recovered/Resolved]
  - Intentional overdose [Unknown]

NARRATIVE: CASE EVENT DATE: 20171213
